FAERS Safety Report 9240368 (Version 1)
Quarter: 2013Q2

REPORT INFORMATION
  Report Type: Spontaneous
  Country: IT (occurrence: IT)
  Receive Date: 20130418
  Receipt Date: 20130418
  Transmission Date: 20140414
  Serious: Yes (Hospitalization)
  Sender: FDA-Public Use
  Company Number: IT-MYLANLABS-2013S1007777

PATIENT
  Age: 86 Year
  Sex: Male

DRUGS (10)
  1. LEVOFLOXACIN [Suspect]
     Indication: PNEUMONIA
     Route: 048
     Dates: start: 20130316, end: 20130323
  2. COUMADIN [Interacting]
     Indication: MITRAL VALVE REPLACEMENT
     Route: 048
     Dates: start: 20110101, end: 20130323
  3. COUMADIN [Interacting]
     Indication: MITRAL VALVE REPLACEMENT
     Dates: start: 20130325, end: 20130329
  4. EUTIROX [Concomitant]
     Indication: PRODUCT USED FOR UNKNOWN INDICATION
  5. OMNIC [Concomitant]
     Indication: PRODUCT USED FOR UNKNOWN INDICATION
  6. LASIX [Concomitant]
     Indication: PRODUCT USED FOR UNKNOWN INDICATION
  7. TRIATEC [Concomitant]
     Indication: PRODUCT USED FOR UNKNOWN INDICATION
  8. LOBIVON [Concomitant]
     Indication: PRODUCT USED FOR UNKNOWN INDICATION
  9. LASITONE [Concomitant]
     Indication: PRODUCT USED FOR UNKNOWN INDICATION
  10. LYRICA [Concomitant]
     Indication: PRODUCT USED FOR UNKNOWN INDICATION

REACTIONS (2)
  - Drug interaction [Unknown]
  - Hypocoagulable state [Unknown]
